FAERS Safety Report 4947490-3 (Version None)
Quarter: 2006Q1

REPORT INFORMATION
  Report Type: 
  Country: None (occurrence: None)
  Receive Date: 20060313
  Receipt Date: 20060228
  Transmission Date: 20060701
  Serious: Yes (Disabling, Other)
  Sender: FDA-Public Use
  Company Number: 2006029790

PATIENT
  Sex: Female
  Weight: 69.4003 kg

DRUGS (4)
  1. NEURONTIN [Suspect]
     Indication: NEUROPATHY
     Dosage: 150 MG (75 MG, 2 IN 1 D),
     Dates: start: 20020101
  2. LYRICA [Suspect]
     Indication: NEUROPATHY
     Dosage: 150 MG (75 MG, 2 IN 1 D),
     Dates: start: 20051001
  3. INSULIN (INSULIN) [Concomitant]
  4. PRILOSEC [Concomitant]

REACTIONS (7)
  - BOWEL MOVEMENT IRREGULARITY [None]
  - DRUG INEFFECTIVE [None]
  - FEELING ABNORMAL [None]
  - FORMICATION [None]
  - GASTROINTESTINAL DISORDER [None]
  - INSOMNIA [None]
  - PAIN IN EXTREMITY [None]
